FAERS Safety Report 4964256-9 (Version None)
Quarter: 2006Q1

REPORT INFORMATION
  Report Type: 
  Country: None (occurrence: None)
  Receive Date: 20060331
  Receipt Date: 20060320
  Transmission Date: 20060701
  Serious: Yes (Hospitalization)
  Sender: FDA-Public Use
  Company Number: 221653

PATIENT
  Age: 50 Year
  Sex: Male

DRUGS (1)
  1. RITUXAN [Suspect]
     Indication: EXTRANODAL MARGINAL ZONE B-CELL LYMPHOMA (MALT TYPE)
     Dosage: 375 MG/KG 1/WEEK, INTRAVENOUS
     Route: 017
     Dates: start: 20060118

REACTIONS (7)
  - ARTHRALGIA [None]
  - CONDITION AGGRAVATED [None]
  - NIGHT SWEATS [None]
  - OEDEMA PERIPHERAL [None]
  - PYREXIA [None]
  - SJOGREN'S SYNDROME [None]
  - SKIN DISCOLOURATION [None]
